FAERS Safety Report 4598872-3 (Version None)
Quarter: 2005Q1

REPORT INFORMATION
  Report Type: 
  Country: None (occurrence: None)
  Receive Date: 20050301
  Receipt Date: 20041220
  Transmission Date: 20050727
  Serious: Yes (Hospitalization)
  Sender: FDA-Public Use
  Company Number: 2004116359

PATIENT
  Sex: Male

DRUGS (5)
  1. BEXTRA [Suspect]
     Indication: PAIN
     Dosage: 10 MG (10 MG, 1 IN 1 D), ORAL
     Route: 048
     Dates: end: 20040101
  2. CELEBREX [Suspect]
     Indication: PAIN
     Dosage: 400 MG (200 MG, 2 IN 1 D), ORAL
     Route: 048
     Dates: start: 20041213
  3. VALSARTAN (VALSARTAN) [Concomitant]
  4. AMLODIPINE BESYLATE [Concomitant]
  5. ATORVASTATIN CALCIUM [Concomitant]

REACTIONS (6)
  - ARTHRITIS [None]
  - DRUG EFFECT DECREASED [None]
  - DRUG INEFFECTIVE [None]
  - HEART RATE INCREASED [None]
  - HEART RATE IRREGULAR [None]
  - NECK PAIN [None]
